FAERS Safety Report 10559634 (Version 1)
Quarter: 2014Q4

REPORT INFORMATION
  Report Type: Spontaneous
  Country: US (occurrence: US)
  Receive Date: 20141103
  Receipt Date: 20141103
  Transmission Date: 20150529
  Serious: Yes (Hospitalization)
  Sender: FDA-Public Use
  Company Number: US-BEH-2014045900

PATIENT
  Age: 73 Year
  Sex: Male
  Weight: 68 kg

DRUGS (38)
  1. FERROUS SULFATE [Concomitant]
     Active Substance: FERROUS SULFATE\FERROUS SULFATE, DRIED
  2. DIPHENHYDRAMINE [Concomitant]
     Active Substance: DIPHENHYDRAMINE
  3. TAZTIA XT [Concomitant]
     Active Substance: DILTIAZEM HYDROCHLORIDE
  4. SINGULAIR [Concomitant]
     Active Substance: MONTELUKAST SODIUM
  5. DOCUSATE [Concomitant]
     Active Substance: DOCUSATE
  6. MAGNESIUM [Concomitant]
     Active Substance: MAGNESIUM
  7. PROAIR HFA [Concomitant]
     Active Substance: ALBUTEROL SULFATE
  8. VITAMIN D [Concomitant]
     Active Substance: CHOLECALCIFEROL
  9. SLOW-MAG [Concomitant]
     Active Substance: MAGNESIUM CHLORIDE
  10. COUMADIN [Concomitant]
     Active Substance: WARFARIN SODIUM
  11. DETROL [Concomitant]
     Active Substance: TOLTERODINE TARTRATE
  12. FEXOFENADINE [Concomitant]
     Active Substance: FEXOFENADINE\FEXOFENADINE HYDROCHLORIDE
  13. HYDROXYZINE [Concomitant]
     Active Substance: HYDROXYZINE\HYDROXYZINE HYDROCHLORIDE
  14. VITAMIN B12 [Concomitant]
     Active Substance: CYANOCOBALAMIN
  15. PRIVIGEN [Suspect]
     Active Substance: HUMAN IMMUNOGLOBULIN G
     Route: 042
  16. EPIPEN [Concomitant]
     Active Substance: EPINEPHRINE
  17. TRICOR [Concomitant]
     Active Substance: FENOFIBRATE
  18. QUINIDINE [Concomitant]
     Active Substance: QUINIDINE
  19. PRIVIGEN [Suspect]
     Active Substance: HUMAN IMMUNOGLOBULIN G
     Route: 042
  20. PRIVIGEN [Suspect]
     Active Substance: HUMAN IMMUNOGLOBULIN G
     Indication: IMMUNODEFICIENCY COMMON VARIABLE
     Route: 042
  21. HYDROCODON-ACETAMINOPH [Concomitant]
  22. QUINIDINE [Concomitant]
     Active Substance: QUINIDINE
  23. NEXIUM [Concomitant]
     Active Substance: ESOMEPRAZOLE MAGNESIUM
  24. SPIRONOLACTONE. [Concomitant]
     Active Substance: SPIRONOLACTONE
  25. ALLOPURINOL. [Concomitant]
     Active Substance: ALLOPURINOL
  26. SODIUM CHLORIDE. [Concomitant]
     Active Substance: SODIUM CHLORIDE
  27. ASTEPRO [Concomitant]
     Active Substance: AZELASTINE HYDROCHLORIDE
  28. LASIX [Concomitant]
     Active Substance: FUROSEMIDE
  29. SYMBICORT [Concomitant]
     Active Substance: BUDESONIDE\FORMOTEROL FUMARATE DIHYDRATE
  30. DOCUSATE [Concomitant]
     Active Substance: DOCUSATE
  31. GABAPENTIN. [Concomitant]
     Active Substance: GABAPENTIN
  32. FAMOTIDINE. [Concomitant]
     Active Substance: FAMOTIDINE
  33. HEPARIN [Concomitant]
     Active Substance: HEPARIN SODIUM
  34. PROMETHAZINE [Concomitant]
     Active Substance: PROMETHAZINE\PROMETHAZINE HYDROCHLORIDE
  35. FOLIC ACID. [Concomitant]
     Active Substance: FOLIC ACID
  36. LOPERAMIDE [Concomitant]
     Active Substance: LOPERAMIDE
  37. THEOPHYLLINE [Concomitant]
     Active Substance: THEOPHYLLINE ANHYDROUS
  38. NASCOBAL [Concomitant]
     Active Substance: CYANOCOBALAMIN

REACTIONS (1)
  - Blood magnesium decreased [Unknown]

NARRATIVE: CASE EVENT DATE: 20141019
